FAERS Safety Report 5528833-9 (Version None)
Quarter: 2007Q4

REPORT INFORMATION
  Report Type: 
  Country: None (occurrence: None)
  Receive Date: 20071129
  Receipt Date: 20071026
  Transmission Date: 20080405
  Serious: No
  Sender: FDA-Public Use
  Company Number: JP-SP-2007-00824

PATIENT
  Age: 64 Year
  Sex: Male

DRUGS (2)
  1. IMMUCYST [Suspect]
     Indication: BLADDER CANCER
     Dosage: 486 MG
     Route: 043
     Dates: start: 20070130, end: 20070306
  2. TAMSULOSIN HCL [Concomitant]
     Dates: start: 20020926

REACTIONS (6)
  - CONJUNCTIVITIS [None]
  - DYSURIA [None]
  - OCULAR HYPERAEMIA [None]
  - REITER'S SYNDROME [None]
  - SCLERITIS [None]
  - URINARY TRACT INFECTION [None]
